FAERS Safety Report 4630840-5 (Version None)
Quarter: 2005Q2

REPORT INFORMATION
  Report Type: 
  Country: None (occurrence: None)
  Receive Date: 20050406
  Receipt Date: 20050330
  Transmission Date: 20051028
  Serious: Yes (Other)
  Sender: FDA-Public Use
  Company Number: US_000846927

PATIENT
  Age: 65 Year
  Sex: Male

DRUGS (5)
  1. HUMALOG [Suspect]
     Indication: DIABETES MELLITUS
     Dates: start: 20020327
  2. HUMULIN 50/50 [Suspect]
     Indication: DIABETES MELLITUS
     Dosage: 45 U/DAY
     Dates: end: 20020327
  3. HUMULIN R [Suspect]
     Indication: DIABETES MELLITUS
     Dosage: 10 U/IN THE MORNING
     Dates: end: 20020327
  4. INSULIN GLARGINE [Concomitant]
  5. SERTRALINE [Concomitant]

REACTIONS (19)
  - ANORGASMIA [None]
  - ASTHENIA [None]
  - BALANCE DISORDER [None]
  - BLOOD GLUCOSE DECREASED [None]
  - BLOOD GLUCOSE INCREASED [None]
  - BLOOD PRESSURE FLUCTUATION [None]
  - DEPRESSION [None]
  - DIZZINESS [None]
  - DRUG EFFECT DECREASED [None]
  - ERECTILE DYSFUNCTION [None]
  - EYE DISORDER [None]
  - GLYCOSYLATED HAEMOGLOBIN INCREASED [None]
  - HYPERTENSION [None]
  - RETINAL OEDEMA [None]
  - RETINAL VASCULAR DISORDER [None]
  - THINKING ABNORMAL [None]
  - TREMOR [None]
  - VISION BLURRED [None]
  - VISUAL ACUITY REDUCED [None]
